FAERS Safety Report 10705219 (Version 2)
Quarter: 2015Q1

REPORT INFORMATION
  Report Type: Report from Study
  Country: FR (occurrence: FR)
  Receive Date: 20150112
  Receipt Date: 20150116
  Transmission Date: 20150721
  Serious: Yes (Death, Hospitalization)
  Sender: FDA-Public Use
  Company Number: FR-BRISTOL-MYERS SQUIBB COMPANY-BMS-2015-000021

PATIENT
  Age: 61 Year
  Sex: Male

DRUGS (11)
  1. LAROXYL [Concomitant]
     Active Substance: AMITRIPTYLINE
     Dosage: UNK
     Dates: start: 2014
  2. NUTRISON [Concomitant]
     Dosage: UNK
     Dates: start: 201410
  3. NIVOLUMAB [Suspect]
     Active Substance: NIVOLUMAB
     Indication: SQUAMOUS CELL CARCINOMA OF HEAD AND NECK
     Dosage: 175 MG,EVERY 15 DAYS
     Route: 042
     Dates: start: 20141222
  4. DURAGESIC [Concomitant]
     Active Substance: FENTANYL
     Dosage: UNK
     Dates: start: 20141212
  5. LYSANXIA [Concomitant]
     Active Substance: PRAZEPAM
     Dosage: UNK
     Dates: start: 201406
  6. TAHOR [Concomitant]
     Active Substance: ATORVASTATIN CALCIUM
     Dosage: UNK
     Dates: start: 1990
  7. SCOPODERM                          /00008703/ [Concomitant]
     Dosage: UNK
     Dates: start: 20141212
  8. PULMICORT TURBUHALER [Concomitant]
     Active Substance: BUDESONIDE
     Dosage: UNK
     Dates: start: 20141212
  9. ACTISKENAN [Concomitant]
     Active Substance: MORPHINE SULFATE
     Dosage: UNK
     Dates: start: 20141212
  10. DOLIPRANE [Concomitant]
     Active Substance: ACETAMINOPHEN
     Dosage: UNK
     Dates: start: 2013
  11. OGASTORO [Concomitant]
     Active Substance: LANSOPRAZOLE
     Dosage: UNK
     Dates: start: 201410

REACTIONS (1)
  - Hypercalcaemia [Fatal]

NARRATIVE: CASE EVENT DATE: 20141229
